FAERS Safety Report 10521810 (Version 2)
Quarter: 2014Q4

REPORT INFORMATION
  Report Type: Spontaneous
  Country: US (occurrence: US)
  Receive Date: 20141016
  Receipt Date: 20141016
  Transmission Date: 20150528
  Serious: Yes (Death, Hospitalization, Other)
  Sender: FDA-Public Use
  Company Number: US-GLAXOSMITHKLINE-A0870869A

PATIENT
  Sex: Male
  Weight: 94 kg

DRUGS (1)
  1. AVANDIA [Suspect]
     Active Substance: ROSIGLITAZONE MALEATE
     Indication: DIABETES MELLITUS
     Dosage: 8 MG, UNK
     Route: 048
     Dates: start: 200409, end: 20050805

REACTIONS (10)
  - Cardiac failure congestive [Unknown]
  - Acute pulmonary oedema [Fatal]
  - Myocardial infarction [Unknown]
  - Cardiac arrest [Unknown]
  - Pneumonia [Unknown]
  - Anaemia [Unknown]
  - Bundle branch block left [Unknown]
  - Cardiomyopathy [Unknown]
  - Resuscitation [Unknown]
  - Coronary artery disease [Unknown]
